FAERS Safety Report 8846542 (Version 2)
Quarter: 2012Q4

REPORT INFORMATION
  Report Type: 
  Country: US (occurrence: US)
  Receive Date: 20121017
  Receipt Date: 20121109
  Transmission Date: 20130627
  Serious: Yes (Hospitalization)
  Sender: FDA-Public Use
  Company Number: US-GLAXOSMITHKLINE-A0997365A

PATIENT
  Age: 56 Year
  Sex: Female

DRUGS (7)
  1. LAMICTAL [Suspect]
     Indication: CONVULSION
     Dosage: 100MG See dosage text
     Route: 065
  2. CLONAZEPAM [Suspect]
     Indication: CONVULSION
     Dosage: 1MG At night
     Route: 065
  3. VIMPAT [Suspect]
     Indication: CONVULSION
     Dosage: 50MG Twice per day
     Route: 065
  4. KEPPRA [Suspect]
     Indication: CONVULSION
     Dosage: 500MG See dosage text
     Route: 065
  5. INLYTA [Suspect]
     Indication: RENAL CELL CARCINOMA
     Dosage: 5MG Twice per day
     Route: 065
     Dates: start: 201206, end: 20120904
  6. PRIMIDONE [Suspect]
     Indication: CONVULSION
     Dosage: 250MG At night
     Route: 065
  7. HYDROCODONE + ACETAMINOPHEN [Concomitant]
     Indication: PRODUCT USED FOR UNKNOWN INDICATION
     Route: 065

REACTIONS (1)
  - Convulsion [Recovered/Resolved]
